FAERS Safety Report 6014347-9 (Version None)
Quarter: 2008Q4

REPORT INFORMATION
  Report Type: 
  Country: None (occurrence: None)
  Receive Date: 20081219
  Receipt Date: 20080429
  Transmission Date: 20090506
  Serious: No
  Sender: FDA-Public Use
  Company Number: A0725343A

PATIENT
  Age: 80 Year
  Sex: Male

DRUGS (5)
  1. AVODART [Suspect]
     Dosage: .5MG PER DAY
     Route: 048
     Dates: start: 20070601
  2. PRAVACHOL [Concomitant]
  3. VITAMIN [Concomitant]
  4. CARDIZEM [Concomitant]
  5. ASPIRIN [Concomitant]

REACTIONS (3)
  - BREAST ENLARGEMENT [None]
  - ERECTILE DYSFUNCTION [None]
  - VERTIGO [None]
